FAERS Safety Report 8272248-X (Version None)
Quarter: 2012Q2

REPORT INFORMATION
  Report Type: 
  Country: None (occurrence: None)
  Receive Date: 20120410
  Receipt Date: 20120402
  Transmission Date: 20120825
  Serious: Yes (Other)
  Sender: FDA-Public Use
  Company Number: PHHY2012NO028133

PATIENT
  Age: 14 Year
  Sex: Male

DRUGS (8)
  1. VINCRISTINE [Suspect]
     Indication: MEDULLOBLASTOMA
  2. CISPLATIN [Suspect]
     Indication: MEDULLOBLASTOMA
  3. ETOPOSIDE [Suspect]
     Indication: MEDULLOBLASTOMA
  4. CARBOPLATIN [Suspect]
     Indication: MEDULLOBLASTOMA
  5. CYCLOPHOSPHAMIDE [Suspect]
     Indication: MEDULLOBLASTOMA
  6. LOMUSTINE [Suspect]
     Indication: MEDULLOBLASTOMA
  7. RADIATION THERAPY [Suspect]
     Indication: MEDULLOBLASTOMA
     Dosage: 35 GY TO THE CRANIOSPINAL AXIS AND 20 GY TUMOR BOOSTS TO THE POSTERIOR FOSSA AND THE CEREBRAL TUMOR
  8. TEMOZOLOMIDE [Suspect]
     Indication: MEDULLOBLASTOMA

REACTIONS (7)
  - COGNITIVE DISORDER [None]
  - DYSARTHRIA [None]
  - COORDINATION ABNORMAL [None]
  - ATAXIA [None]
  - VISUAL IMPAIRMENT [None]
  - NEUROTOXICITY [None]
  - HYPOTHYROIDISM [None]
